FAERS Safety Report 9353203 (Version 4)
Quarter: 2013Q3

REPORT INFORMATION
  Report Type: Spontaneous
  Country: US (occurrence: US)
  Receive Date: 20130618
  Receipt Date: 20130923
  Transmission Date: 20140515
  Serious: Yes (Other)
  Sender: FDA-Public Use
  Company Number: US-PFIZER INC-2013182162

PATIENT
  Age: 87 Year
  Sex: Female

DRUGS (13)
  1. LYRICA [Suspect]
     Indication: NEUROPATHY PERIPHERAL
     Dosage: 25 MG, 2 CAPSULES AT BEDTIME
     Route: 048
     Dates: start: 200608
  2. LYRICA [Suspect]
     Dosage: UNK
     Dates: start: 20071115
  3. LYRICA [Suspect]
     Dosage: 25 MG, 1X/DAY
     Route: 048
  4. NORVASC [Concomitant]
     Dosage: 5 MG, 1X/DAY
     Route: 048
  5. TENORMIN [Concomitant]
     Dosage: 50 MG, 1X/DAY
     Route: 048
  6. CALCIUM + D [Concomitant]
     Dosage: 600 MG (1500MG-200 UNIT), 2X/DAY
  7. PLAVIX [Concomitant]
     Dosage: 75 MG, 1X/DAY
     Route: 048
  8. LOPID [Concomitant]
     Dosage: 600 MG, 2X/DAY (BEFORE MEALS)
     Route: 048
  9. AVAPRO [Concomitant]
     Dosage: 150 MG (1/2 TABLET OF 300 MG), 2X/DAY
     Route: 048
  10. MEVACOR [Concomitant]
     Dosage: 80 MG, 1X/DAY
     Route: 048
  11. REMERON [Concomitant]
     Dosage: 15 MG, 1X/DAY (AT BEDTIME)
     Route: 048
  12. MAXZIDE [Concomitant]
     Dosage: 1 DF (25 (37.5-25 MG)), 1X/DAY
     Route: 048
  13. OCUVITE LUTEIN [Concomitant]
     Dosage: 2 PER DAY

REACTIONS (15)
  - Mental impairment [Unknown]
  - Angina pectoris [Recovered/Resolved]
  - Arteriosclerosis coronary artery [Unknown]
  - Renal failure acute [Unknown]
  - Gastrointestinal haemorrhage [Unknown]
  - Gastritis erosive [Unknown]
  - Diverticulum intestinal [Unknown]
  - Anaemia [Recovered/Resolved]
  - Anaemia of chronic disease [Unknown]
  - Renal failure chronic [Unknown]
  - Pain [Unknown]
  - Drug hypersensitivity [Unknown]
  - Pain in extremity [Unknown]
  - Insomnia [Unknown]
  - Hypercalcaemia [Unknown]
